FAERS Safety Report 8516466-1 (Version None)
Quarter: 2012Q3

REPORT INFORMATION
  Report Type: 
  Country: None (occurrence: None)
  Receive Date: 20120718
  Receipt Date: 20120716
  Transmission Date: 20120928
  Serious: No
  Sender: FDA-Public Use
  Company Number: US-PFIZER INC-2012171367

PATIENT
  Sex: Female
  Weight: 68.027 kg

DRUGS (1)
  1. GEODON [Suspect]
     Indication: DEPRESSION
     Dosage: 20 MG, 1X/DAY
     Route: 048
     Dates: start: 20100101

REACTIONS (5)
  - HEADACHE [None]
  - VOMITING [None]
  - HYPERHIDROSIS [None]
  - DRUG DOSE OMISSION [None]
  - TREMOR [None]
